FAERS Safety Report 19227357 (Version 1)
Quarter: 2021Q2

REPORT INFORMATION
  Report Type: Spontaneous
  Country: US (occurrence: US)
  Receive Date: 20210507
  Receipt Date: 20210507
  Transmission Date: 20210717
  Serious: Yes (Other)
  Sender: FDA-Public Use
  Company Number: US-ROCHE-2823682

PATIENT
  Sex: Male
  Weight: 107.6 kg

DRUGS (1)
  1. RITUXAN [Suspect]
     Active Substance: RITUXIMAB
     Indication: STIFF PERSON SYNDROME
     Dosage: RECEIVED DOUBLE DOSE X 2  2WEEKS APART
     Route: 065
     Dates: start: 2019

REACTIONS (4)
  - Off label use [Unknown]
  - Ill-defined disorder [Not Recovered/Not Resolved]
  - Suicide attempt [Unknown]
  - Bedridden [Unknown]

NARRATIVE: CASE EVENT DATE: 2019
